FAERS Safety Report 5488648-7 (Version None)
Quarter: 2007Q4

REPORT INFORMATION
  Report Type: 
  Country: None (occurrence: None)
  Receive Date: 20071017
  Receipt Date: 20070322
  Transmission Date: 20080405
  Serious: No
  Sender: FDA-Public Use
  Company Number: A0644490A

PATIENT
  Age: 19 Month
  Sex: Male

DRUGS (1)
  1. CEFTIN [Suspect]
     Indication: EAR INFECTION
     Route: 048
     Dates: start: 20070201, end: 20070201

REACTIONS (1)
  - INTERCEPTED DRUG DISPENSING ERROR [None]
